FAERS Safety Report 25187800 (Version 5)
Quarter: 2025Q2

REPORT INFORMATION
  Report Type: Spontaneous
  Country: JP (occurrence: JP)
  Receive Date: 20250411
  Receipt Date: 20250612
  Transmission Date: 20250716
  Serious: Yes (Death, Hospitalization, Disabling, Other)
  Sender: ASTELLAS
  Company Number: JP-ASTELLAS-2025-AER-007533

PATIENT
  Age: 72 Year
  Sex: Male
  Weight: 66 kg

DRUGS (26)
  1. PADCEV [Suspect]
     Active Substance: ENFORTUMAB VEDOTIN-EJFV
     Indication: Ureteric cancer metastatic
     Dosage: 84MG(1.25MG/KG) X 1 TIME/DAY
     Route: 042
     Dates: start: 20250120, end: 20250127
  2. PADCEV [Suspect]
     Active Substance: ENFORTUMAB VEDOTIN-EJFV
     Indication: Bladder cancer
  3. KEYTRUDA [Suspect]
     Active Substance: PEMBROLIZUMAB
     Indication: Transitional cell cancer of renal pelvis and ureter metastatic
     Route: 042
     Dates: start: 20250120, end: 20250120
  4. PIPERACILLIN SODIUM\TAZOBACTAM SODIUM [Suspect]
     Active Substance: PIPERACILLIN SODIUM\TAZOBACTAM SODIUM
     Indication: Febrile neutropenia
     Dosage: 4.5X3 TIMES/DAY
     Route: 065
     Dates: start: 20250205, end: 20250218
  5. MICAFUNGIN [Suspect]
     Active Substance: MICAFUNGIN SODIUM
     Indication: Febrile neutropenia
     Route: 065
     Dates: start: 20250205, end: 20250217
  6. Glactiv tablet 50mg [Concomitant]
     Indication: Product used for unknown indication
     Route: 048
  7. CANDESARTAN [Concomitant]
     Active Substance: CANDESARTAN
     Indication: Product used for unknown indication
     Route: 048
  8. Bezafibrate SR tablet 200mg [Concomitant]
     Indication: Product used for unknown indication
     Route: 048
  9. Actos tablet 15mg [Concomitant]
     Indication: Product used for unknown indication
     Route: 048
  10. PREDONINE [Concomitant]
     Active Substance: PREDNISOLONE
     Indication: Erythema multiforme
     Dosage: 60MG/DAY (1MG/KG)
     Route: 048
     Dates: start: 20250131
  11. PREDONINE [Concomitant]
     Active Substance: PREDNISOLONE
     Indication: Toxic epidermal necrolysis
     Route: 048
     Dates: start: 20250215
  12. PREDONINE [Concomitant]
     Active Substance: PREDNISOLONE
     Route: 048
     Dates: start: 20250218
  13. PREDONINE [Concomitant]
     Active Substance: PREDNISOLONE
     Route: 048
     Dates: start: 20250222
  14. FENOFIBRATE [Concomitant]
     Active Substance: FENOFIBRATE
     Indication: Product used for unknown indication
     Route: 048
  15. PIOGLITAZONE [Concomitant]
     Active Substance: PIOGLITAZONE
     Indication: Product used for unknown indication
     Route: 048
  16. FILGRASTIM [Concomitant]
     Active Substance: FILGRASTIM
     Indication: Febrile neutropenia
     Route: 065
     Dates: start: 20250205, end: 202502
  17. PREDONINE for Injection [Concomitant]
     Indication: Immune-mediated enterocolitis
     Route: 042
  18. Ganciclovir for Injection [Concomitant]
     Indication: Immune-mediated enterocolitis
     Route: 042
  19. Ganciclovir for Injection [Concomitant]
     Indication: Viral diarrhoea
  20. Cefmetazole for Injection [Concomitant]
     Indication: Immune-mediated enterocolitis
     Route: 042
  21. Cefmetazole for Injection [Concomitant]
     Indication: Sepsis
  22. Vancomycin for Injection [Concomitant]
     Indication: Immune-mediated enterocolitis
     Route: 042
  23. Vancomycin for Injection [Concomitant]
     Route: 042
     Dates: start: 20250309
  24. Minocycline for Injection [Concomitant]
     Indication: Immune-mediated enterocolitis
     Route: 042
  25. Minocycline for Injection [Concomitant]
     Route: 042
     Dates: start: 20250309
  26. OMEPRAZOLE [Concomitant]
     Active Substance: OMEPRAZOLE
     Indication: Immune-mediated enterocolitis
     Route: 042

REACTIONS (9)
  - Liver disorder [Not Recovered/Not Resolved]
  - Erythema multiforme [Fatal]
  - Toxic epidermal necrolysis [Fatal]
  - Sepsis [Recovering/Resolving]
  - Febrile neutropenia [Recovered/Resolved]
  - Malnutrition [Not Recovered/Not Resolved]
  - Viral diarrhoea [Unknown]
  - Pyrexia [Not Recovered/Not Resolved]
  - Immune-mediated enterocolitis [Not Recovered/Not Resolved]

NARRATIVE: CASE EVENT DATE: 20250130
